FAERS Safety Report 25970621 (Version 1)
Quarter: 2025Q4

REPORT INFORMATION
  Report Type: Spontaneous
  Country: AU (occurrence: AU)
  Receive Date: 20251028
  Receipt Date: 20251028
  Transmission Date: 20260118
  Serious: Yes (Other)
  Sender: SANDOZ
  Company Number: None

PATIENT
  Age: 49 Year
  Sex: Male

DRUGS (5)
  1. CYCLOPHOSPHAMIDE [Suspect]
     Active Substance: CYCLOPHOSPHAMIDE
     Indication: Superficial spreading melanoma stage unspecified
     Dosage: UNK
     Route: 042
     Dates: start: 20250731, end: 20250801
  2. FLUDARABINE PHOSPHATE [Suspect]
     Active Substance: FLUDARABINE PHOSPHATE
     Indication: Superficial spreading melanoma stage unspecified
     Dosage: UNK
     Route: 042
     Dates: start: 20250731, end: 20250801
  3. PEMBROLIZUMAB [Suspect]
     Active Substance: PEMBROLIZUMAB
     Indication: Superficial spreading melanoma stage unspecified
     Dosage: 200 MG
     Route: 042
     Dates: start: 20250616, end: 20250616
  4. PEMBROLIZUMAB [Suspect]
     Active Substance: PEMBROLIZUMAB
     Indication: Superficial spreading melanoma stage unspecified
     Dosage: 400 MG
     Route: 042
     Dates: start: 20250708, end: 20250708
  5. PROLEUKIN [Suspect]
     Active Substance: ALDESLEUKIN
     Indication: Superficial spreading melanoma stage unspecified
     Dosage: 189.8 ML 06-AUG-2025 00:00
     Route: 042
     Dates: end: 20250808

REACTIONS (2)
  - Presyncope [Recovered/Resolved]
  - Visual impairment [Recovered/Resolved]

NARRATIVE: CASE EVENT DATE: 20250802
